FAERS Safety Report 6063307-0 (Version None)
Quarter: 2009Q1

REPORT INFORMATION
  Report Type: 
  Country: None (occurrence: None)
  Receive Date: 20090203
  Receipt Date: 20090128
  Transmission Date: 20090719
  Serious: Yes (Disabling)
  Sender: FDA-Public Use
  Company Number: MX-SANOFI-SYNTHELABO-A01200900861

PATIENT
  Age: 76 Year
  Sex: Female

DRUGS (6)
  1. IRBESARTAN - HYDROCHLOROTHIAZIDE [Concomitant]
     Indication: HYPERTENSION
     Dosage: UNK
     Route: 048
  2. CRESTOR [Concomitant]
     Indication: DYSLIPIDAEMIA
     Dosage: UNK
     Route: 048
  3. LEVEMIR [Concomitant]
     Indication: TYPE 2 DIABETES MELLITUS
     Dosage: UNK
     Route: 058
  4. NOVORAPID [Concomitant]
     Indication: TYPE 2 DIABETES MELLITUS
     Dosage: UNK
     Route: 058
  5. PLAVIX [Suspect]
     Indication: PROPHYLAXIS
     Route: 048
     Dates: start: 20060101, end: 20090101
  6. PLAVIX [Suspect]
     Dosage: 150 MG
     Route: 048
     Dates: start: 20090101

REACTIONS (4)
  - BLINDNESS UNILATERAL [None]
  - DRUG INEFFECTIVE [None]
  - OVERDOSE [None]
  - RETINAL ARTERY THROMBOSIS [None]
